FAERS Safety Report 15796236 (Version 1)
Quarter: 2019Q1

REPORT INFORMATION
  Report Type: Spontaneous
  Country: US (occurrence: US)
  Receive Date: 20190108
  Receipt Date: 20190108
  Transmission Date: 20190417
  Serious: No
  Sender: FDA-Public Use
  Company Number: US-009507513-1901USA000255

PATIENT
  Age: 23 Year
  Sex: Female
  Weight: 52.15 kg

DRUGS (1)
  1. NEXPLANON [Suspect]
     Active Substance: ETONOGESTREL
     Indication: CONTRACEPTION
     Dosage: IMPLANT IN LEFT ARM, 3 YEARS
     Route: 059
     Dates: start: 20160822

REACTIONS (4)
  - Feeling cold [Unknown]
  - Menorrhagia [Unknown]
  - Migraine [Unknown]
  - Fatigue [Unknown]

NARRATIVE: CASE EVENT DATE: 201806
